FAERS Safety Report 8339264-0 (Version None)
Quarter: 2012Q2

REPORT INFORMATION
  Report Type: 
  Country: None (occurrence: None)
  Receive Date: 20120507
  Receipt Date: 20120426
  Transmission Date: 20120825
  Serious: Yes (Other)
  Sender: FDA-Public Use
  Company Number: GB-JNJFOC-20120500496

PATIENT
  Age: 41 Year
  Sex: Male

DRUGS (3)
  1. TRIAMCINOLONE [Suspect]
     Indication: BACK PAIN
     Route: 030
  2. RITONAVIR [Interacting]
     Indication: HIV INFECTION
     Route: 048
  3. DARUNAVIR HYDRATE [Suspect]
     Indication: HIV INFECTION
     Route: 048

REACTIONS (2)
  - CUSHING'S SYNDROME [None]
  - DRUG INTERACTION [None]
